FAERS Safety Report 6286644-3 (Version None)
Quarter: 2009Q3

REPORT INFORMATION
  Report Type: 
  Country: None (occurrence: None)
  Receive Date: 20090728
  Receipt Date: 20090717
  Transmission Date: 20100115
  Serious: Yes (Hospitalization)
  Sender: FDA-Public Use
  Company Number: PHHY2009JP28301

PATIENT
  Age: 19 Year
  Sex: Female
  Weight: 55.6 kg

DRUGS (10)
  1. VOLTAREN [Suspect]
     Dosage: 50 MG, UNK
     Route: 054
  2. PROPOFOL [Suspect]
     Route: 042
  3. ATROPINE SULFATE [Concomitant]
     Dosage: UNK
     Route: 042
  4. ULTIVA [Concomitant]
     Dosage: 4900 UG, UNK
  5. DIPRIVAN [Concomitant]
     Dosage: 2700 MG, UNK
  6. ROCURONIUM BROMIDE [Concomitant]
     Indication: MUSCLE RELAXANT THERAPY
     Dosage: 120 MG, UNK
  7. FENTANEST [Concomitant]
     Dosage: 0.1 MG, UNK
  8. RINDERON [Concomitant]
     Dosage: 4 MG, UNK
  9. CEFAMEZIN [Concomitant]
     Dosage: 1 G, UNK
  10. BLOOD TRANSFUSION [Concomitant]
     Dosage: 400ML

REACTIONS (4)
  - BLOOD URINE PRESENT [None]
  - CHROMATURIA [None]
  - CREATININE RENAL CLEARANCE INCREASED [None]
  - PROTEIN URINE PRESENT [None]
